FAERS Safety Report 12735538 (Version 4)
Quarter: 2017Q3

REPORT INFORMATION
  Report Type: Report from Study
  Country: BR (occurrence: BR)
  Receive Date: 20160912
  Receipt Date: 20170822
  Transmission Date: 20171127
  Serious: Yes (Other)
  Sender: FDA-Public Use
  Company Number: PHHY2016BR124779

PATIENT
  Age: 44 Year
  Sex: Female
  Weight: 60 kg

DRUGS (6)
  1. FRISIUM [Concomitant]
     Active Substance: CLOBAZAM
     Indication: DEPRESSION
  2. MELLERIL//THIORIDAZINE [Concomitant]
     Indication: INSOMNIA
     Dosage: 1 DF, QD
     Route: 065
  3. FRISIUM [Concomitant]
     Active Substance: CLOBAZAM
     Indication: INSOMNIA
     Dosage: 20 MG, QD
     Route: 048
  4. SIMVASTATIN. [Concomitant]
     Active Substance: SIMVASTATIN
     Indication: BLOOD CHOLESTEROL
     Dosage: 20 MG, QD
     Route: 048
  5. GILENYA [Suspect]
     Active Substance: FINGOLIMOD HYDROCHLORIDE
     Indication: MULTIPLE SCLEROSIS
     Dosage: 0.5 MG, QD
     Route: 048
     Dates: start: 201412, end: 201608
  6. TOPIRAMATE. [Concomitant]
     Active Substance: TOPIRAMATE
     Indication: BIPOLAR DISORDER
     Dosage: 100 MG, QD
     Route: 048

REACTIONS (5)
  - Gait disturbance [Unknown]
  - Platelet count decreased [Unknown]
  - Immunodeficiency [Unknown]
  - Lower limb fracture [Recovered/Resolved]
  - Fall [Unknown]

NARRATIVE: CASE EVENT DATE: 201608
